FAERS Safety Report 7987313-1 (Version None)
Quarter: 2011Q4

REPORT INFORMATION
  Report Type: 
  Country: None (occurrence: None)
  Receive Date: 20111216
  Receipt Date: 20111011
  Transmission Date: 20120403
  Serious: No
  Sender: FDA-Public Use
  Company Number: US-BRISTOL-MYERS SQUIBB COMPANY-16158347

PATIENT
  Age: 48 Year
  Sex: Female

DRUGS (6)
  1. ABILIFY [Suspect]
     Indication: MANIA
     Route: 048
  2. DEPAKOTE [Suspect]
     Indication: MANIA
     Dosage: TABLETS 1000-1500MGDAILY JUL 2011-ONGOING
     Route: 048
     Dates: start: 20110501, end: 20110701
  3. HALDOL [Suspect]
     Indication: BIPOLAR DISORDER
     Dosage: 60MG TAKEN OFF COLD TURKEY 2011-2011
     Route: 048
     Dates: start: 20110501, end: 20110101
  4. ABILIFY [Suspect]
     Indication: SCHIZOAFFECTIVE DISORDER
     Route: 048
  5. HALDOL [Suspect]
     Indication: SCHIZOAFFECTIVE DISORDER
     Dosage: 60MG TAKEN OFF COLD TURKEY 2011-2011
     Route: 048
     Dates: start: 20110501, end: 20110101
  6. ABILIFY [Suspect]
     Indication: BIPOLAR DISORDER
     Route: 048

REACTIONS (14)
  - MUTISM [None]
  - DYSKINESIA [None]
  - ABNORMAL BEHAVIOUR [None]
  - BRUXISM [None]
  - RETCHING [None]
  - FATIGUE [None]
  - TOBACCO USER [None]
  - POLYDIPSIA [None]
  - MUSCLE TWITCHING [None]
  - EYE MOVEMENT DISORDER [None]
  - SOCIAL AVOIDANT BEHAVIOUR [None]
  - SOMNOLENCE [None]
  - GRUNTING [None]
  - DECREASED APPETITE [None]
